FAERS Safety Report 11395948 (Version 1)
Quarter: 2015Q3

REPORT INFORMATION
  Report Type: Spontaneous
  Country: US (occurrence: None)
  Receive Date: 20150818
  Receipt Date: 20150818
  Transmission Date: 20151125
  Serious: No
  Sender: FDA-Public Use
  Company Number: None

PATIENT
  Age: 34 Year
  Sex: Female
  Weight: 69.85 kg

DRUGS (3)
  1. BACTRIM [Suspect]
     Active Substance: SULFAMETHOXAZOLE\TRIMETHOPRIM
     Indication: URINARY TRACT INFECTION
     Route: 048
     Dates: start: 20150811, end: 20150811
  2. GUMMY PRENATAL VITAMINS [Concomitant]
  3. TOPAMAX [Concomitant]
     Active Substance: TOPIRAMATE

REACTIONS (7)
  - Headache [None]
  - Vertigo [None]
  - Muscle disorder [None]
  - Chills [None]
  - Pyrexia [None]
  - Chest pain [None]
  - Paraesthesia [None]

NARRATIVE: CASE EVENT DATE: 20150812
